FAERS Safety Report 19760225 (Version 4)
Quarter: 2021Q4

REPORT INFORMATION
  Report Type: Spontaneous
  Country: US (occurrence: US)
  Receive Date: 20210830
  Receipt Date: 20211207
  Transmission Date: 20220304
  Serious: No
  Sender: FDA-Public Use
  Company Number: US-BRISTOL-MYERS SQUIBB COMPANY-BMS-2021-086180

PATIENT
  Age: 35 Year
  Sex: Male
  Weight: 67 kg

DRUGS (10)
  1. NIVOLUMAB [Suspect]
     Active Substance: NIVOLUMAB
     Indication: Clear cell renal cell carcinoma
     Dosage: 480 MG, Q4WEEKS
     Route: 065
     Dates: start: 20210324, end: 20210712
  2. CABOMETYX [Suspect]
     Active Substance: CABOZANTINIB S-MALATE
     Indication: Clear cell renal cell carcinoma
     Dosage: 40 MILLIGRAM, QD
     Route: 048
     Dates: start: 20210314
  3. PREDNISONE [Concomitant]
     Active Substance: PREDNISONE
     Indication: Product used for unknown indication
     Dosage: UNK
     Route: 065
  4. POTASSIUM AND SODIUM PHOSPHATE [Concomitant]
     Indication: Product used for unknown indication
     Dosage: UNK
     Route: 065
  5. OXYCODONE [Concomitant]
     Active Substance: OXYCODONE
     Indication: Product used for unknown indication
     Dosage: UNK
     Route: 065
  6. TRAZODONE [Concomitant]
     Active Substance: TRAZODONE HYDROCHLORIDE
     Indication: Product used for unknown indication
     Dosage: UNK
     Route: 065
  7. PROCHLORPERAZINE [Concomitant]
     Active Substance: PROCHLORPERAZINE
     Indication: Product used for unknown indication
     Dosage: UNK
     Route: 065
  8. DIPHENHYDRAMINE-LIDOCAINE-MAALOX [Concomitant]
     Indication: Product used for unknown indication
     Dosage: UNK
     Route: 065
  9. TYLENOL [Concomitant]
     Active Substance: ACETAMINOPHEN
     Indication: Product used for unknown indication
     Dosage: UNK
     Route: 065
  10. DOCUSATE SODIUM\SENNOSIDES [Concomitant]
     Active Substance: DOCUSATE SODIUM\SENNOSIDES
     Indication: Product used for unknown indication
     Dosage: UNK
     Route: 065

REACTIONS (12)
  - Hyperkeratosis [Unknown]
  - Sensitive skin [Recovering/Resolving]
  - Oral pain [Recovered/Resolved]
  - Dry mouth [Recovered/Resolved]
  - Dry skin [Recovering/Resolving]
  - Decreased appetite [Recovering/Resolving]
  - Fatigue [Not Recovered/Not Resolved]
  - Pain in extremity [Recovering/Resolving]
  - Hypophosphataemia [Recovered/Resolved]
  - Diarrhoea [Recovered/Resolved]
  - Arthralgia [Recovering/Resolving]
  - Joint swelling [Recovering/Resolving]

NARRATIVE: CASE EVENT DATE: 20210323
